FAERS Safety Report 6896038-5 (Version None)
Quarter: 2010Q3

REPORT INFORMATION
  Report Type: 
  Country: None (occurrence: None)
  Receive Date: 20100802
  Receipt Date: 20100721
  Transmission Date: 20110219
  Serious: Yes (Hospitalization)
  Sender: FDA-Public Use
  Company Number: A0808527A

PATIENT
  Age: 46 Year
  Sex: Female
  Weight: 116.4 kg

DRUGS (2)
  1. AVANDIA [Suspect]
     Route: 065
     Dates: start: 19990101, end: 20071001
  2. AVANDARYL [Suspect]
     Route: 065
     Dates: start: 20060501, end: 20080901

REACTIONS (4)
  - CHEST DISCOMFORT [None]
  - CHEST PAIN [None]
  - CORONARY ARTERY DISEASE [None]
  - MIGRAINE [None]
